FAERS Safety Report 21142557 (Version 3)
Quarter: 2022Q3

REPORT INFORMATION
  Report Type: Report from Study
  Country: FR (occurrence: None)
  Receive Date: 20220728
  Receipt Date: 20220901
  Transmission Date: 20221026
  Serious: Yes (Death, Hospitalization)
  Sender: FDA-Public Use
  Company Number: 2022A262810

PATIENT
  Age: 90 Year
  Sex: Female
  Weight: 54 kg

DRUGS (1)
  1. EVUSHELD [Suspect]
     Active Substance: CILGAVIMAB\TIXAGEVIMAB
     Indication: COVID-19 prophylaxis
     Route: 030
     Dates: start: 20220107, end: 20220107

REACTIONS (7)
  - T-cell lymphoma recurrent [Fatal]
  - Confusional state [Fatal]
  - Dyspnoea [Fatal]
  - General physical health deterioration [Fatal]
  - Meningitis viral [Fatal]
  - Metastases to meninges [Fatal]
  - Product use issue [Unknown]

NARRATIVE: CASE EVENT DATE: 20220101
